FAERS Safety Report 11415872 (Version 1)
Quarter: 2015Q3

REPORT INFORMATION
  Report Type: Spontaneous
  Country: JP (occurrence: JP)
  Receive Date: 20150825
  Receipt Date: 20150825
  Transmission Date: 20151125
  Serious: Yes (Hospitalization, Other)
  Sender: FDA-Public Use
  Company Number: JP-SANOFI-AVENTIS-2013SA065326

PATIENT
  Age: 75 Year
  Sex: Male

DRUGS (3)
  1. DOCETAXEL. [Suspect]
     Active Substance: DOCETAXEL
     Indication: OESOPHAGEAL CARCINOMA RECURRENT
     Route: 065
  2. FLUOROURACIL. [Suspect]
     Active Substance: FLUOROURACIL
     Indication: OESOPHAGEAL CARCINOMA RECURRENT
     Route: 065
  3. CISPLATIN. [Suspect]
     Active Substance: CISPLATIN
     Indication: OESOPHAGEAL CARCINOMA RECURRENT
     Route: 065

REACTIONS (10)
  - Emphysema [Recovering/Resolving]
  - Gastric disorder [Recovering/Resolving]
  - Hypertrophy [Recovering/Resolving]
  - Streptococcal infection [Recovering/Resolving]
  - Inflammation [Recovering/Resolving]
  - Staphylococcal infection [Recovering/Resolving]
  - Portal venous gas [Recovered/Resolved]
  - Febrile neutropenia [Recovering/Resolving]
  - Hypophagia [Recovering/Resolving]
  - Pyrexia [Recovering/Resolving]
